FAERS Safety Report 8098050-X (Version None)
Quarter: 2012Q1

REPORT INFORMATION
  Report Type: 
  Country: None (occurrence: None)
  Receive Date: 20120128
  Receipt Date: 20110725
  Transmission Date: 20120608
  Serious: No
  Sender: FDA-Public Use
  Company Number: US-ABBOTT-11P-163-0842257-00

PATIENT
  Sex: Male

DRUGS (1)
  1. HUMIRA [Suspect]
     Indication: COLITIS
     Route: 058
     Dates: start: 20110202

REACTIONS (3)
  - DRUG EFFECT DECREASED [None]
  - FREQUENT BOWEL MOVEMENTS [None]
  - ABDOMINAL DISTENSION [None]
